FAERS Safety Report 14586779 (Version 1)
Quarter: 2018Q1

REPORT INFORMATION
  Report Type: Spontaneous
  Country: DE (occurrence: DE)
  Receive Date: 20180301
  Receipt Date: 20180301
  Transmission Date: 20180509
  Serious: Yes (Other)
  Sender: FDA-Public Use
  Company Number: DE-TEVA-2018-DE-861032

PATIENT
  Age: 73 Year
  Sex: Female

DRUGS (2)
  1. VINCRISTINSULFAT-TEVA 1 MG / ML INJEKTIONSLOESUNG [Suspect]
     Active Substance: VINCRISTINE SULFATE
     Indication: ACUTE LYMPHOCYTIC LEUKAEMIA
     Route: 042
  2. ASPARAGINASE [Suspect]
     Active Substance: ASPARAGINASE
     Indication: ACUTE LYMPHOCYTIC LEUKAEMIA
     Route: 065

REACTIONS (3)
  - Ketoacidosis [Recovering/Resolving]
  - Inappropriate schedule of drug administration [Unknown]
  - Meningitis [Recovering/Resolving]
